FAERS Safety Report 8543680-1 (Version None)
Quarter: 2012Q3

REPORT INFORMATION
  Report Type: 
  Country: None (occurrence: None)
  Receive Date: 20120727
  Receipt Date: 20120718
  Transmission Date: 20120928
  Serious: Yes (Other)
  Sender: FDA-Public Use
  Company Number: JP-ASTRAZENECA-2012SE50077

PATIENT
  Age: 67 Year
  Sex: Female

DRUGS (8)
  1. KETAMINE HCL [Suspect]
  2. ROCURONIUM BROMIDE [Concomitant]
     Indication: HYPOTONIA
  3. KETAMINE HCL [Suspect]
     Indication: GENERAL ANAESTHESIA
  4. PROPOFOL [Suspect]
     Indication: GENERAL ANAESTHESIA
     Route: 042
  5. FENTANYL [Suspect]
     Indication: GENERAL ANAESTHESIA
     Route: 042
  6. FENTANYL [Suspect]
     Dosage: INTERMITTENT DOSES OF 0.2 MG
     Route: 042
  7. SEVOFLURANE [Suspect]
  8. REMIFENTANIL [Suspect]
     Dosage: 0.5 MICROG/KG/H

REACTIONS (1)
  - POSTERIOR REVERSIBLE ENCEPHALOPATHY SYNDROME [None]
